FAERS Safety Report 14933958 (Version 1)
Quarter: 2018Q2

REPORT INFORMATION
  Report Type: Spontaneous
  Country: US (occurrence: US)
  Receive Date: 20180504
  Receipt Date: 20180504
  Transmission Date: 20180711
  Serious: Yes (Hospitalization)
  Sender: FDA-Public Use
  Company Number: None

PATIENT
  Age: 63 Year
  Sex: Male

DRUGS (7)
  1. IBUPROFEN. [Concomitant]
     Active Substance: IBUPROFEN
  2. PRISTIQ EXTENDED-RELEASE [Concomitant]
     Active Substance: DESVENLAFAXINE SUCCINATE
  3. LORAZEPAM. [Concomitant]
     Active Substance: LORAZEPAM
  4. ATORVASTATIN [Concomitant]
     Active Substance: ATORVASTATIN
  5. AZOR [Concomitant]
     Active Substance: AMLODIPINE BESYLATE\OLMESARTAN MEDOXOMIL
  6. NORCO [Concomitant]
     Active Substance: ACETAMINOPHEN\HYDROCODONE BITARTRATE
  7. LONSURF [Suspect]
     Active Substance: TIPIRACIL HYDROCHLORIDE\TRIFLURIDINE
     Indication: HEPATIC CANCER
     Route: 048
     Dates: start: 20180301

REACTIONS (1)
  - Diarrhoea [None]
